FAERS Safety Report 13051991 (Version 1)
Quarter: 2016Q4

REPORT INFORMATION
  Report Type: Spontaneous
  Country: US (occurrence: US)
  Receive Date: 20161221
  Receipt Date: 20161221
  Transmission Date: 20170207
  Serious: Yes (Death, Hospitalization)
  Sender: FDA-Public Use
  Company Number: US-SA-2016SA228422

PATIENT
  Age: 64 Year
  Sex: Male

DRUGS (2)
  1. PROTAMINE SULFATE. [Suspect]
     Active Substance: PROTAMINE SULFATE
     Indication: PROCOAGULANT THERAPY
     Route: 042
  2. ENOXAPARIN SODIUM. [Suspect]
     Active Substance: ENOXAPARIN SODIUM
     Indication: PULMONARY EMBOLISM
     Dosage: 1 MG/KG (50 MG)
     Route: 065

REACTIONS (7)
  - Anaphylactic reaction [Unknown]
  - Hypoxia [Unknown]
  - Subarachnoid haemorrhage [Unknown]
  - Cardiac arrest [Fatal]
  - Bradycardia [Unknown]
  - Mental status changes [Unknown]
  - Pulseless electrical activity [Fatal]
